FAERS Safety Report 17574280 (Version 2)
Quarter: 2022Q4

REPORT INFORMATION
  Report Type: Spontaneous
  Country: US (occurrence: US)
  Receive Date: 20200324
  Receipt Date: 20221103
  Transmission Date: 20230113
  Serious: Yes (Other)
  Sender: FDA-Public Use
  Company Number: US-BEH-2020114703

PATIENT
  Sex: Female

DRUGS (7)
  1. HAEGARDA [Suspect]
     Active Substance: HUMAN C1-ESTERASE INHIBITOR
     Indication: Hereditary angioedema
     Dosage: 4600 INTERNATIONAL UNIT, BIW
     Route: 058
     Dates: start: 20190312
  2. HAEGARDA [Suspect]
     Active Substance: HUMAN C1-ESTERASE INHIBITOR
     Indication: Prophylaxis
  3. HAEGARDA [Suspect]
     Active Substance: HUMAN C1-ESTERASE INHIBITOR
     Indication: Anaphylactic shock
     Dosage: 5000 INTERNATIONAL UNIT, BIW
     Route: 058
  4. HAEGARDA [Suspect]
     Active Substance: HUMAN C1-ESTERASE INHIBITOR
     Indication: Prophylaxis
  5. CETIRIZINE HCL [Concomitant]
     Active Substance: CETIRIZINE HYDROCHLORIDE
  6. MONTELUKAST [Concomitant]
     Active Substance: MONTELUKAST SODIUM
  7. RUCONEST [Concomitant]
     Active Substance: HUMAN C1-ESTERASE INHIBITOR

REACTIONS (5)
  - Hereditary angioedema [Recovered/Resolved]
  - Ligament sprain [Recovered/Resolved]
  - Hereditary angioedema [Recovered/Resolved]
  - No adverse event [Unknown]
  - Off label use [Unknown]

NARRATIVE: CASE EVENT DATE: 20220101
